FAERS Safety Report 7401700-1 (Version None)
Quarter: 2011Q1

REPORT INFORMATION
  Report Type: 
  Country: None (occurrence: None)
  Receive Date: 20110329
  Receipt Date: 20110322
  Transmission Date: 20110831
  Serious: Yes (Life-Threatening)
  Sender: FDA-Public Use
  Company Number: 2011TJ0005

PATIENT
  Age: 37 Year
  Sex: Female

DRUGS (1)
  1. TWINJECT (EPINEPHRINE) INJECTION [Suspect]
     Indication: HYPERSENSITIVITY
     Dosage: 0.3 MG, AS NEEDED
     Dates: start: 20110301, end: 20110301

REACTIONS (4)
  - DRUG EFFECT DECREASED [None]
  - DEVICE MALFUNCTION [None]
  - PRODUCT QUALITY ISSUE [None]
  - INCORRECT DOSE ADMINISTERED BY DEVICE [None]
